FAERS Safety Report 21192077 (Version 1)
Quarter: 2022Q3

REPORT INFORMATION
  Report Type: Spontaneous
  Country: US (occurrence: US)
  Receive Date: 20220809
  Receipt Date: 20220809
  Transmission Date: 20221027
  Serious: No
  Sender: FDA-Public Use
  Company Number: US-ENDO PHARMACEUTICALS INC-2021-012553

PATIENT
  Age: 69 Year
  Sex: Male
  Weight: 88.435 kg

DRUGS (14)
  1. TESTOPEL [Suspect]
     Active Substance: TESTOSTERONE
     Indication: Product used for unknown indication
     Dosage: UNK, UNKNOWN (12 PELLETS)
     Route: 065
     Dates: start: 20201111
  2. TESTOPEL [Suspect]
     Active Substance: TESTOSTERONE
     Indication: Product used for unknown indication
     Dosage: UNK, UNKNOWN (12 PELLETS)
     Route: 065
     Dates: start: 20201111
  3. TESTOPEL [Suspect]
     Active Substance: TESTOSTERONE
     Dosage: UNK, UNKNOWN (12 PELLETS)
     Route: 065
     Dates: start: 20210216
  4. TESTOPEL [Suspect]
     Active Substance: TESTOSTERONE
     Dosage: UNK, UNKNOWN (12 PELLETS)
     Route: 065
     Dates: start: 20210216
  5. TESTOPEL [Suspect]
     Active Substance: TESTOSTERONE
     Dosage: UNK, UNKNOWN (12 PELLETS)
     Route: 065
     Dates: start: 20210608
  6. TESTOPEL [Suspect]
     Active Substance: TESTOSTERONE
     Dosage: UNK, UNKNOWN (12 PELLETS)
     Route: 065
     Dates: start: 20210608
  7. TESTOPEL [Suspect]
     Active Substance: TESTOSTERONE
     Dosage: UNK, UNKNOWN (12 PELLETS)
     Route: 065
     Dates: start: 20211012
  8. TESTOPEL [Suspect]
     Active Substance: TESTOSTERONE
     Dosage: UNK, UNKNOWN (12 PELLETS)
     Route: 065
     Dates: start: 20211012
  9. ATORVASTATIN [Concomitant]
     Active Substance: ATORVASTATIN
     Indication: Blood triglycerides abnormal
     Dosage: 1 DF, DAILY
     Route: 065
  10. LEVOTHYROXINE [Concomitant]
     Active Substance: LEVOTHYROXINE
     Indication: Post procedural hypothyroidism
     Dosage: 1 DF, DAILY
     Route: 065
  11. LOSARTAN [Concomitant]
     Active Substance: LOSARTAN
     Indication: Chronic kidney disease
     Dosage: 1 DF, DAILY
     Route: 065
  12. LOSARTAN [Concomitant]
     Active Substance: LOSARTAN
     Indication: Essential hypertension
  13. PANTOPRAZOLE [Concomitant]
     Active Substance: PANTOPRAZOLE
     Indication: Gastrooesophageal reflux disease
     Dosage: 1 DF, DAILY
     Route: 065
  14. DOXEPIN [Concomitant]
     Active Substance: DOXEPIN
     Indication: Insomnia
     Dosage: UNK, UNKNOWN, AS NEEDED
     Route: 065

REACTIONS (2)
  - Blood testosterone decreased [Unknown]
  - Off label use [Unknown]

NARRATIVE: CASE EVENT DATE: 20201111
